FAERS Safety Report 5063883-0 (Version None)
Quarter: 2006Q3

REPORT INFORMATION
  Report Type: 
  Country: None (occurrence: None)
  Receive Date: 20060727
  Receipt Date: 20060519
  Transmission Date: 20061208
  Serious: Yes (Congenital Anomaly, Other)
  Sender: FDA-Public Use
  Company Number: US-ABBOTT-06P-163-0333902-00

PATIENT
  Sex: Male

DRUGS (8)
  1. KALETRA [Suspect]
     Indication: DRUG EXPOSURE DURING PREGNANCY
  2. NORVIR [Suspect]
     Indication: DRUG EXPOSURE DURING PREGNANCY
  3. ATAZANAVIR [Suspect]
     Indication: DRUG EXPOSURE DURING PREGNANCY
  4. TENOFOVIR DISOPROXIL FUMARATE/EMTRICITABINE [Suspect]
     Indication: DRUG EXPOSURE DURING PREGNANCY
  5. TRIZIVIR [Suspect]
     Indication: DRUG EXPOSURE DURING PREGNANCY
  6. NELFINAVIR MESILATE [Suspect]
     Indication: DRUG EXPOSURE DURING PREGNANCY
  7. ZIDOVUDINE W/LAMIVUDINE [Suspect]
     Indication: DRUG EXPOSURE DURING PREGNANCY
  8. ZIDOVUDINE [Suspect]
     Indication: DRUG EXPOSURE DURING PREGNANCY

REACTIONS (25)
  - APNOEA [None]
  - BODY TEMPERATURE FLUCTUATION [None]
  - CONGENITAL TORTICOLLIS [None]
  - CONVULSION [None]
  - CYANOSIS NEONATAL [None]
  - DEVELOPMENTAL DELAY [None]
  - DRUG EXPOSURE DURING PREGNANCY [None]
  - ELECTROENCEPHALOGRAM ABNORMAL [None]
  - FEEDING DISORDER NEONATAL [None]
  - FEEDING DISORDER OF INFANCY OR EARLY CHILDHOOD [None]
  - HYPOTONIA [None]
  - MELANOCYTIC NAEVUS [None]
  - MICROCEPHALY [None]
  - MULTIPLE CONGENITAL ABNORMALITIES [None]
  - MYOCLONUS [None]
  - OXYGEN SATURATION DECREASED [None]
  - PETECHIAE [None]
  - RESPIRATORY DISORDER [None]
  - RESPIRATORY DISTRESS [None]
  - SEPSIS [None]
  - SKULL MALFORMATION [None]
  - TRISOMY 15 [None]
  - TRISOMY 21 [None]
  - VISION ABNORMAL NEONATAL [None]
  - VISUAL TRACKING TEST ABNORMAL [None]
